FAERS Safety Report 8123469-8 (Version None)
Quarter: 2012Q1

REPORT INFORMATION
  Report Type: 
  Country: None (occurrence: None)
  Receive Date: 20120208
  Receipt Date: 20120131
  Transmission Date: 20120608
  Serious: Yes (Hospitalization)
  Sender: FDA-Public Use
  Company Number: PHHO2012US002016

PATIENT
  Sex: Female
  Weight: 59.4 kg

DRUGS (7)
  1. MULTI-VITAMINS [Concomitant]
     Dosage: DAILY
  2. ACETAMINOPHEN AND HYDROCODONE BITARTRATE [Concomitant]
     Dosage: 650/7.5 MG EVERY 6 HOURS PRN
  3. LEUCOVORIN CALCIUM [Suspect]
     Indication: SMALL INTESTINE CARCINOMA METASTATIC
     Dosage: 518 MG D1, 15 Q28 DAYS
     Route: 042
     Dates: end: 20120110
  4. SOM230 [Suspect]
     Indication: SMALL INTESTINE CARCINOMA METASTATIC
     Dosage: UNK
     Route: 030
     Dates: end: 20111219
  5. FLUOROURACIL [Suspect]
     Indication: SMALL INTESTINE CARCINOMA METASTATIC
     Dosage: UNK
     Route: 042
     Dates: end: 20120110
  6. IRINOTECAN HCL [Suspect]
     Indication: SMALL INTESTINE CARCINOMA METASTATIC
     Dosage: 243 MG D1Q28 DAYS
     Route: 042
     Dates: end: 20120110
  7. IBUPROFEN [Concomitant]
     Dosage: PRN

REACTIONS (2)
  - FEBRILE NEUTROPENIA [None]
  - NEOPLASM MALIGNANT [None]
